FAERS Safety Report 7819174-5 (Version None)
Quarter: 2011Q4

REPORT INFORMATION
  Report Type: 
  Country: None (occurrence: None)
  Receive Date: 20111018
  Receipt Date: 20111013
  Transmission Date: 20120403
  Serious: Yes (Hospitalization)
  Sender: FDA-Public Use
  Company Number: US-VERTEX PHARMACEUTICALS INC.-AE-2011-000827

PATIENT
  Sex: Female

DRUGS (9)
  1. COPEGUS [Concomitant]
     Indication: HEPATITIS C
     Route: 048
     Dates: start: 20110722
  2. COREG [Concomitant]
     Indication: PROPHYLAXIS
     Route: 048
  3. PRAVASTATIN [Concomitant]
     Indication: PROPHYLAXIS
     Route: 048
  4. INCIVEK [Suspect]
     Indication: HEPATITIS C
     Route: 048
     Dates: start: 20110722
  5. ENALAPRIL MALEATE [Concomitant]
     Indication: BLOOD PRESSURE
     Route: 048
  6. PEGASYS [Concomitant]
     Indication: HEPATITIS C
     Route: 058
     Dates: start: 20110722
  7. NORVASC [Concomitant]
     Indication: BLOOD PRESSURE
     Route: 048
  8. PLAVIX [Concomitant]
     Indication: PROPHYLAXIS
     Route: 048
  9. TRAMADOL HCL [Concomitant]
     Indication: PAIN
     Route: 048

REACTIONS (9)
  - VOMITING [None]
  - CHEILOSIS [None]
  - NASAL DISCOMFORT [None]
  - ASTHENIA [None]
  - FATIGUE [None]
  - NAUSEA [None]
  - DEHYDRATION [None]
  - STOMATITIS [None]
  - ANAEMIA [None]
